FAERS Safety Report 5642570-1 (Version None)
Quarter: 2008Q1

REPORT INFORMATION
  Report Type: 
  Country: None (occurrence: None)
  Receive Date: 20080227
  Receipt Date: 20080227
  Transmission Date: 20080703
  Serious: Yes (Other)
  Sender: FDA-Public Use
  Company Number: None

PATIENT
  Age: 79 Year
  Sex: Male

DRUGS (6)
  1. FOSAMAX [Suspect]
     Indication: PROSTATE CANCER
     Dosage: 70MG PER WEEK
     Dates: start: 20031101, end: 20060501
  2. BETA BLOCKERS [Concomitant]
  3. SYNTHROID PROSCAR [Concomitant]
  4. ZOCOR [Concomitant]
  5. FLONASE [Concomitant]
  6. PREDNISONE TAB [Concomitant]

REACTIONS (3)
  - BONE PAIN [None]
  - BONE SWELLING [None]
  - OSTEONECROSIS [None]
